FAERS Safety Report 8049063-5 (Version None)
Quarter: 2012Q1

REPORT INFORMATION
  Report Type: 
  Country: None (occurrence: None)
  Receive Date: 20120117
  Receipt Date: 20120111
  Transmission Date: 20120608
  Serious: Yes (Other)
  Sender: FDA-Public Use
  Company Number: JP-SANOFI-AVENTIS-2012SA002268

PATIENT
  Age: 80 Year
  Sex: Male

DRUGS (12)
  1. BASEN [Concomitant]
  2. PLETAL [Concomitant]
  3. LASIX [Concomitant]
  4. SELBEX [Concomitant]
  5. ALL OTHER THERAPEUTIC PRODUCTS [Concomitant]
     Dosage: FORM: TAPE
  6. ASPIRIN [Concomitant]
  7. ROSUVASTATIN CALCIUM [Concomitant]
  8. ALLEGRA [Suspect]
     Route: 065
  9. ALLOPURINOL [Concomitant]
  10. VALSARTAN AND HYDROCHLOROTHIAZIDE [Concomitant]
  11. ADALAT [Concomitant]
  12. CALCIUM CARBONATE [Concomitant]

REACTIONS (1)
  - PSORIASIS [None]
